FAERS Safety Report 19868999 (Version 6)
Quarter: 2023Q4

REPORT INFORMATION
  Report Type: Report from Study
  Country: AT (occurrence: AT)
  Receive Date: 20210923
  Receipt Date: 20231017
  Transmission Date: 20240110
  Serious: Yes (Hospitalization, Other)
  Sender: FDA-Public Use
  Company Number: AT-CELLTRION INC.-2021AT008282

PATIENT

DRUGS (21)
  1. ONTRUZANT [Suspect]
     Active Substance: TRASTUZUMAB-DTTB
     Indication: HER2 positive breast cancer
     Dosage: MOST RECENT DOSE PRIOR TO THE EVENT: 8/JUL/2020
     Route: 042
     Dates: start: 20181128, end: 20181128
  2. ONTRUZANT [Suspect]
     Active Substance: TRASTUZUMAB-DTTB
     Dosage: 288.2 MG, Q4WEEKS
     Route: 042
     Dates: start: 20181219
  3. TRASTUZUMAB [Suspect]
     Active Substance: TRASTUZUMAB
     Indication: HER2 positive breast cancer
     Dosage: 288.2 MG, EVERY 4 WEEKS (MOST RECENT DOSE PRIOR TO THE EVENT: 8/JUL/2020)
     Route: 042
     Dates: start: 20181128, end: 20181128
  4. TRASTUZUMAB [Suspect]
     Active Substance: TRASTUZUMAB
     Dosage: 288.2 MG, EVERY 4 WEEKS
     Route: 042
     Dates: start: 20181219
  5. DENOSUMAB [Suspect]
     Active Substance: DENOSUMAB
     Indication: HER2 positive breast cancer
     Dosage: 120 MG, EVERY 4 WEEKS (MOST RECENT DOSE PRIOR TO AE /JAN/2021)
     Route: 058
     Dates: start: 20181106
  6. LETROZOLE [Suspect]
     Active Substance: LETROZOLE
     Indication: HER2 positive breast cancer
     Dosage: 2.5 MG, DAILY
     Route: 048
     Dates: start: 20181121
  7. PANTOPRAZOLE SODIUM [Concomitant]
     Active Substance: PANTOPRAZOLE SODIUM
     Dosage: ONGOING = CHECKED
  8. ACETAMINOPHEN [Concomitant]
     Active Substance: ACETAMINOPHEN
     Dosage: UNK
     Dates: start: 20181219, end: 20181219
  9. NEBIVOLOL HYDROCHLORIDE [Concomitant]
     Active Substance: NEBIVOLOL HYDROCHLORIDE
  10. RILMENIDINE [Concomitant]
     Active Substance: RILMENIDINE
     Dosage: ONGOING = CHECKED
  11. RANITIDINE HYDROCHLORIDE [Concomitant]
     Active Substance: RANITIDINE HYDROCHLORIDE
     Dosage: ONGOING = CHECKED
  12. CANDESARTAN CILEXETIL AND HYDROCHLOROTHIAZIDE [Concomitant]
     Active Substance: CANDESARTAN CILEXETIL\HYDROCHLOROTHIAZIDE
  13. SIMVASTATIN [Concomitant]
     Active Substance: SIMVASTATIN
     Dosage: ONGOING = CHECKED
  14. VITAMINS WITH MINERALS [Concomitant]
     Active Substance: MINERALS\VITAMINS
     Dosage: ONGOING = CHECKED
  15. CALMOLAN [Concomitant]
     Dosage: ONGOING = CHECKED
  16. TRAMADOL [Concomitant]
     Active Substance: TRAMADOL\TRAMADOL HYDROCHLORIDE
     Dosage: ONGOING = CHECKED
     Dates: start: 20201015
  17. CALCIDURAN [ASCORBIC ACID;CALCIUM PHOSPHATE;CITRIC ACID;COLECALCIFEROL [Concomitant]
     Dosage: ONGOING = CHECKED
     Dates: start: 20201015
  18. ADAMON [TRAMADOL HYDROCHLORIDE] [Concomitant]
     Dosage: ONGOING = CHECKED
     Dates: start: 20201015
  19. MIRTAZAPINE [Concomitant]
     Active Substance: MIRTAZAPINE
     Dosage: ONGOING = CHECKED
     Dates: start: 20201015
  20. PREGABALIN ACC [Concomitant]
     Dosage: ONGOING = CHECKED
     Dates: start: 20201015
  21. CANDESARTAN [Concomitant]
     Active Substance: CANDESARTAN
     Dosage: ONGOING = CHECKED
     Dates: start: 20201015

REACTIONS (3)
  - Osteonecrosis of jaw [Recovered/Resolved]
  - Infusion related reaction [Recovered/Resolved]
  - Intentional product use issue [Unknown]

NARRATIVE: CASE EVENT DATE: 20181128
